FAERS Safety Report 7816131-X (Version None)
Quarter: 2011Q4

REPORT INFORMATION
  Report Type: 
  Country: None (occurrence: None)
  Receive Date: 20111015
  Receipt Date: 20111013
  Transmission Date: 20120403
  Serious: Yes (Other)
  Sender: FDA-Public Use
  Company Number: FR-ROCHE-1004585

PATIENT
  Age: 42 Year
  Sex: Female

DRUGS (3)
  1. TAXOL [Suspect]
     Indication: LUNG ADENOCARCINOMA
     Route: 065
  2. IRESSA [Suspect]
     Indication: LUNG ADENOCARCINOMA
     Route: 065
  3. AVASTIN [Suspect]
     Indication: LUNG ADENOCARCINOMA
     Route: 065

REACTIONS (1)
  - ENCEPHALOPATHY [None]
